FAERS Safety Report 7604762-1 (Version None)
Quarter: 2011Q3

REPORT INFORMATION
  Report Type: 
  Country: None (occurrence: None)
  Receive Date: 20110712
  Receipt Date: 20110705
  Transmission Date: 20111222
  Serious: Yes (Hospitalization)
  Sender: FDA-Public Use
  Company Number: PHHY2011US45449

PATIENT
  Sex: Female

DRUGS (8)
  1. GILENYA [Suspect]
     Dosage: UNK UKN, UNK
     Route: 048
  2. FENTANYL-100 [Concomitant]
     Dosage: 75 UG, UNK
  3. NEURONTIN [Concomitant]
     Dosage: 300 MG, UNK
  4. RESTORIL [Concomitant]
     Dosage: 7.5 MG, UNK
  5. GILENYA [Suspect]
     Indication: MULTIPLE SCLEROSIS
     Dosage: 0.5 MG, QD
     Route: 048
     Dates: start: 20110310, end: 20110603
  6. REMERON [Concomitant]
     Dosage: 15 MG, UNK
  7. SEROQUEL [Concomitant]
     Dosage: 25 MG, UNK
  8. KLONOPIN [Concomitant]
     Dosage: 1 MG, UNK

REACTIONS (4)
  - PROTEIN TOTAL INCREASED [None]
  - MULTIPLE SCLEROSIS RELAPSE [None]
  - HEMIPLEGIA [None]
  - OVERDOSE [None]
